FAERS Safety Report 7477132-7 (Version None)
Quarter: 2011Q2

REPORT INFORMATION
  Report Type: 
  Country: None (occurrence: None)
  Receive Date: 20110512
  Receipt Date: 20110127
  Transmission Date: 20111010
  Serious: No
  Sender: FDA-Public Use
  Company Number: US-NOVEN-11US001700

PATIENT
  Sex: Male
  Weight: 28.571 kg

DRUGS (4)
  1. GUANFACINE HYDROCHLORIDE [Concomitant]
     Indication: PRODUCT USED FOR UNKNOWN INDICATION
     Dosage: 1 TAB BID
     Route: 048
     Dates: start: 20060101
  2. CITALOPRAM HYDROBROMIDE [Concomitant]
     Indication: ANXIETY
     Dosage: 2.5-5 ML QD
     Route: 048
     Dates: start: 20100601
  3. MELATONIN [Concomitant]
     Indication: INSOMNIA
     Dosage: 3 MG, 1 TAB
     Route: 048
     Dates: start: 20060101
  4. DAYTRANA [Suspect]
     Indication: ATTENTION DEFICIT/HYPERACTIVITY DISORDER
     Dosage: 20 MG, 1X/DAY:QD
     Route: 062
     Dates: start: 20060501

REACTIONS (6)
  - DISTURBANCE IN SOCIAL BEHAVIOUR [None]
  - WRONG TECHNIQUE IN DRUG USAGE PROCESS [None]
  - PRODUCT QUALITY ISSUE [None]
  - DRUG INEFFECTIVE [None]
  - DISTRACTIBILITY [None]
  - OFF LABEL USE [None]
